FAERS Safety Report 24788984 (Version 1)
Quarter: 2024Q4

REPORT INFORMATION
  Report Type: Spontaneous
  Country: CN (occurrence: CN)
  Receive Date: 20241230
  Receipt Date: 20241230
  Transmission Date: 20250114
  Serious: Yes (Hospitalization, Other)
  Sender: MERCK
  Company Number: CN-009507513-2412CHN009173

PATIENT
  Age: 75 Year
  Sex: Male

DRUGS (3)
  1. KEYTRUDA [Suspect]
     Active Substance: PEMBROLIZUMAB
     Indication: Lung adenocarcinoma
     Dosage: 200MG D1, ONCE EVERY 21 DAYS
     Route: 041
     Dates: start: 20240903, end: 20241018
  2. PEMETREXED DISODIUM [Suspect]
     Active Substance: PEMETREXED DISODIUM
     Indication: Lung adenocarcinoma
     Dosage: 800MG D1, ONCE EVERY 21 DAYS
     Route: 041
     Dates: start: 20240903, end: 20241018
  3. CARBOPLATIN [Suspect]
     Active Substance: CARBOPLATIN
     Indication: Lung adenocarcinoma
     Dosage: 300 MG (AC=4-5) D1, ONCE EVERY 21 DAYS
     Route: 041
     Dates: start: 20240903, end: 20241018

REACTIONS (9)
  - Immune-mediated lung disease [Recovering/Resolving]
  - Urinary tract infection [Unknown]
  - Therapy partial responder [Unknown]
  - Nausea [Unknown]
  - Hiccups [Unknown]
  - Asthenia [Unknown]
  - Decreased appetite [Unknown]
  - Perinephric collection [Unknown]
  - Inappropriate schedule of product administration [Unknown]

NARRATIVE: CASE EVENT DATE: 20240101
